FAERS Safety Report 8821749 (Version 1)
Quarter: 2012Q4

REPORT INFORMATION
  Report Type: 
  Country: US (occurrence: US)
  Receive Date: 20121002
  Receipt Date: 20121002
  Transmission Date: 20130627
  Serious: No
  Sender: FDA-Public Use
  Company Number: US-009507513-1209USA001358

PATIENT
  Age: 62 None
  Sex: Female
  Weight: 74.83 kg

DRUGS (2)
  1. SINGULAIR [Suspect]
     Dosage: 10 mg, qd
     Route: 048
     Dates: start: 2003
  2. ZYRTEC [Suspect]
     Indication: HYPERSENSITIVITY
     Dosage: 10 mg, qd
     Dates: start: 201203, end: 20120816

REACTIONS (13)
  - Chronic obstructive pulmonary disease [Not Recovered/Not Resolved]
  - Hypersensitivity [Unknown]
  - Withdrawal syndrome [Not Recovered/Not Resolved]
  - Dyspnoea [Unknown]
  - Tremor [Unknown]
  - Visual impairment [Unknown]
  - Abdominal discomfort [Unknown]
  - Asthenia [Unknown]
  - Sleep disorder [Unknown]
  - Nausea [Unknown]
  - Malaise [Unknown]
  - Feeling jittery [Unknown]
  - Weight decreased [Unknown]
